FAERS Safety Report 24345420 (Version 1)
Quarter: 2024Q3

REPORT INFORMATION
  Report Type: Spontaneous
  Country: US (occurrence: US)
  Receive Date: 20240920
  Receipt Date: 20240920
  Transmission Date: 20241017
  Serious: Yes (Other)
  Sender: PFIZER
  Company Number: US-PFIZER INC-202400259391

PATIENT
  Age: 46 Year
  Sex: Female
  Weight: 93 kg

DRUGS (7)
  1. NURTEC ODT [Suspect]
     Active Substance: RIMEGEPANT SULFATE
     Indication: Migraine
     Dosage: TOOK 1 EVERY OTHER DAY ORAL
     Route: 048
     Dates: start: 202404, end: 20240828
  2. ADDERALL [Concomitant]
     Active Substance: AMPHETAMINE ASPARTATE\AMPHETAMINE SULFATE\DEXTROAMPHETAMINE SACCHARATE\DEXTROAMPHETAMINE SULFATE
     Indication: Attention deficit hyperactivity disorder
     Dosage: 10CP24 ONCE A DAY
     Route: 048
     Dates: start: 202308
  3. ESTRADIOL [Concomitant]
     Active Substance: ESTRADIOL
     Indication: Hot flush
     Dosage: 5MG ONCE A DAY
     Route: 048
     Dates: start: 2022
  4. PROZAC [Concomitant]
     Active Substance: FLUOXETINE HYDROCHLORIDE
     Indication: Depression
     Dosage: 20MG 1 ONCE A DAY
     Route: 048
  5. BUSPAR [Concomitant]
     Active Substance: BUSPIRONE HYDROCHLORIDE
     Indication: Mood swings
     Dosage: 10MG TAKES 1 TWICE A DAY
     Route: 048
  6. MEMANTINE [Concomitant]
     Active Substance: MEMANTINE
     Indication: Migraine
     Dosage: TAKES 1 TWICE A DAY
     Route: 048
  7. PROMETHAZINE [Concomitant]
     Active Substance: PROMETHAZINE HYDROCHLORIDE
     Indication: Migraine
     Dosage: TAKES 1 AS NEEDED ORALLY
     Route: 048

REACTIONS (16)
  - Near death experience [Unknown]
  - Cytokine storm [Unknown]
  - Neuropathy peripheral [Recovering/Resolving]
  - Arthralgia [Recovering/Resolving]
  - Tendonitis [Recovering/Resolving]
  - Back pain [Recovering/Resolving]
  - Pain in extremity [Recovering/Resolving]
  - Gait inability [Not Recovered/Not Resolved]
  - Asthenia [Unknown]
  - Burning sensation [Unknown]
  - Feeling abnormal [Unknown]
  - Arthropathy [Recovering/Resolving]
  - Musculoskeletal stiffness [Unknown]
  - Spinal pain [Recovering/Resolving]
  - Pain [Recovering/Resolving]
  - Fatigue [Unknown]

NARRATIVE: CASE EVENT DATE: 20240401
